FAERS Safety Report 5983783-9 (Version None)
Quarter: 2008Q4

REPORT INFORMATION
  Report Type: 
  Country: None (occurrence: None)
  Receive Date: 20081205
  Receipt Date: 20081205
  Transmission Date: 20090506
  Serious: No
  Sender: FDA-Public Use
  Company Number: None

PATIENT
  Sex: Male
  Weight: 93 kg

DRUGS (1)
  1. PEG-L-ASPARAGINASE (K-H) [Suspect]
     Dosage: 5250 IU

REACTIONS (2)
  - DYSPNOEA [None]
  - INFUSION RELATED REACTION [None]
